FAERS Safety Report 7053133-8 (Version None)
Quarter: 2010Q4

REPORT INFORMATION
  Report Type: 
  Country: None (occurrence: None)
  Receive Date: 20101020
  Receipt Date: 20101004
  Transmission Date: 20110411
  Serious: Yes (Hospitalization)
  Sender: FDA-Public Use
  Company Number: US-BAYER-201029199NA

PATIENT
  Age: 20 Year
  Sex: Female
  Weight: 45 kg

DRUGS (7)
  1. YASMIN [Suspect]
     Indication: ORAL CONTRACEPTION
     Route: 048
     Dates: start: 20061201, end: 20080701
  2. OCELLA [Suspect]
     Indication: ORAL CONTRACEPTION
     Route: 048
     Dates: start: 20080701, end: 20080804
  3. ALBUTEROL INHALER [Concomitant]
  4. PROVIGIL [Concomitant]
  5. VICODIN [Concomitant]
  6. TRAMADOL [Concomitant]
     Indication: PAIN
  7. ACETAMINOPHEN [Concomitant]
     Indication: MUSCULOSKELETAL PAIN

REACTIONS (12)
  - AXILLARY PAIN [None]
  - CEREBRAL INFARCTION [None]
  - CHILLS [None]
  - DEEP VEIN THROMBOSIS [None]
  - ERYTHEMA [None]
  - HYPOAESTHESIA [None]
  - JOINT SWELLING [None]
  - MUSCULOSKELETAL PAIN [None]
  - NAUSEA [None]
  - OEDEMA PERIPHERAL [None]
  - PULMONARY EMBOLISM [None]
  - PYREXIA [None]
